FAERS Safety Report 15260402 (Version 2)
Quarter: 2018Q3

REPORT INFORMATION
  Report Type: Report from Study
  Country: None (occurrence: JP)
  Receive Date: 20180809
  Receipt Date: 20180913
  Transmission Date: 20181010
  Serious: Yes (Other)
  Sender: FDA-Public Use
  Company Number: JP-ABBVIE-18P-087-2447142-00

PATIENT
  Sex: Male

DRUGS (1)
  1. LEUPLIN [Suspect]
     Active Substance: LEUPROLIDE ACETATE
     Indication: SPINAL MUSCULAR ATROPHY
     Dosage: 11.25 MG, Q3MONTHS
     Route: 058

REACTIONS (3)
  - Muscular weakness [Unknown]
  - Depressive symptom [Unknown]
  - Road traffic accident [Recovered/Resolved]
